FAERS Safety Report 15788715 (Version 3)
Quarter: 2019Q1

REPORT INFORMATION
  Report Type: Spontaneous
  Country: TR (occurrence: TR)
  Receive Date: 20190104
  Receipt Date: 20190129
  Transmission Date: 20190417
  Serious: Yes (Death, Hospitalization)
  Sender: FDA-Public Use
  Company Number: TR-BAYER-2019-001965

PATIENT
  Age: 76 Year
  Sex: Female

DRUGS (7)
  1. LANSOR [Concomitant]
     Active Substance: LANSOPRAZOLE
     Dosage: UNK
  2. LASIX [Concomitant]
     Active Substance: FUROSEMIDE
     Dosage: UNK
  3. DIGOXIN. [Concomitant]
     Active Substance: DIGOXIN
     Dosage: UNK
  4. ADEMPAS [Suspect]
     Active Substance: RIOCIGUAT
     Indication: PULMONARY HYPERTENSION
     Dosage: 2.5 MG
     Dates: start: 201808, end: 201812
  5. URIKOLIZ [Concomitant]
     Active Substance: ALLOPURINOL
     Dosage: UNK
  6. EUTHYROX [Concomitant]
     Active Substance: LEVOTHYROXINE SODIUM
     Dosage: UNK
  7. BELOC [METOPROLOL SUCCINATE] [Concomitant]
     Dosage: UNK

REACTIONS (2)
  - Pulmonary oedema [Fatal]
  - Generalised oedema [Fatal]

NARRATIVE: CASE EVENT DATE: 201812
